FAERS Safety Report 13536103 (Version 1)
Quarter: 2017Q2

REPORT INFORMATION
  Report Type: Spontaneous
  Country: US (occurrence: US)
  Receive Date: 20170511
  Receipt Date: 20170511
  Transmission Date: 20170830
  Serious: Yes (Other)
  Sender: FDA-Public Use
  Company Number: US-AMWAY-2017AMY00027

PATIENT
  Age: 27 Year
  Sex: Female
  Weight: 73.47 kg

DRUGS (1)
  1. ARTISTRY TIME DEFIANCE DAY PROTECT LOTION [Suspect]
     Active Substance: AVOBENZONE\OCTINOXATE
     Dosage: UNK, 2X/DAY
     Route: 061
     Dates: start: 201611, end: 201612

REACTIONS (6)
  - Application site inflammation [None]
  - Rash erythematous [None]
  - Product formulation issue [None]
  - Swelling face [None]
  - Hypersensitivity [Recovered/Resolved]
  - Skin irritation [Recovered/Resolved]

NARRATIVE: CASE EVENT DATE: 201611
